FAERS Safety Report 6011406-1 (Version None)
Quarter: 2008Q4

REPORT INFORMATION
  Report Type: 
  Country: None (occurrence: None)
  Receive Date: 20081217
  Receipt Date: 20081217
  Transmission Date: 20090506
  Serious: Yes (Other)
  Sender: FDA-Public Use
  Company Number: None

PATIENT
  Age: 56 Year
  Sex: Female
  Weight: 61.2356 kg

DRUGS (1)
  1. FOSAMAX [Suspect]
     Indication: OSTEOPOROSIS
     Dosage: ONE PILL WEEKLY PO
     Route: 048
     Dates: start: 20081102, end: 20081207

REACTIONS (5)
  - CONTUSION [None]
  - DIZZINESS [None]
  - FAECES DISCOLOURED [None]
  - OEDEMA PERIPHERAL [None]
  - PAIN IN EXTREMITY [None]
